FAERS Safety Report 4461732-2 (Version None)
Quarter: 2004Q3

REPORT INFORMATION
  Report Type: 
  Country: None (occurrence: None)
  Receive Date: 20040929
  Receipt Date: 20040426
  Transmission Date: 20050211
  Serious: Yes (Hospitalization)
  Sender: FDA-Public Use
  Company Number: FR-BRISTOL-MYERS SQUIBB COMPANY-12570438

PATIENT
  Age: 67 Year
  Sex: Male

DRUGS (3)
  1. CETUXIMAB [Suspect]
     Indication: COLORECTAL CANCER METASTATIC
     Dosage: INITIAL THERAPY DATE: 14-JAN-2004.
     Route: 042
     Dates: start: 20040302, end: 20040302
  2. IRINOTECAN [Suspect]
     Indication: COLORECTAL CANCER METASTATIC
     Dosage: INITIAL THERAPY DATE: 14-JAN-04.
     Route: 042
     Dates: start: 20040225, end: 20040225
  3. DARBEPOETIN ALFA [Concomitant]
     Dates: start: 20040204, end: 20040313

REACTIONS (2)
  - FEBRILE NEUTROPENIA [None]
  - GENERAL PHYSICAL HEALTH DETERIORATION [None]
